FAERS Safety Report 13138786 (Version 1)
Quarter: 2017Q1

REPORT INFORMATION
  Report Type: Spontaneous
  Country: US (occurrence: US)
  Receive Date: 20170123
  Receipt Date: 20170123
  Transmission Date: 20170428
  Serious: No
  Sender: FDA-Public Use
  Company Number: US-PFIZER INC-2017025053

PATIENT
  Sex: Female

DRUGS (1)
  1. XELJANZ XR [Suspect]
     Active Substance: TOFACITINIB CITRATE
     Dosage: 11 MG, 1X/DAY
     Route: 048
     Dates: start: 20161001

REACTIONS (11)
  - Dry mouth [Unknown]
  - Joint swelling [Unknown]
  - Dizziness [Unknown]
  - Insomnia [Unknown]
  - Sleep disorder [Unknown]
  - Dry eye [Unknown]
  - Vision blurred [Unknown]
  - Arthralgia [Unknown]
  - Fatigue [Unknown]
  - Increased tendency to bruise [Unknown]
  - Headache [Unknown]
